FAERS Safety Report 8034337-4 (Version None)
Quarter: 2012Q1

REPORT INFORMATION
  Report Type: 
  Country: None (occurrence: None)
  Receive Date: 20120110
  Receipt Date: 20120106
  Transmission Date: 20120608
  Serious: Yes (Other)
  Sender: FDA-Public Use
  Company Number: PHHY2011FR100949

PATIENT
  Sex: Male
  Weight: 90 kg

DRUGS (1)
  1. EVEROLIMUS [Suspect]
     Indication: RENAL CANCER METASTATIC
     Dosage: 10 MG, DAILY
     Route: 048
     Dates: start: 20110922

REACTIONS (3)
  - CONSTIPATION [None]
  - DIARRHOEA [None]
  - CHOLESTASIS [None]
